FAERS Safety Report 7642854-1 (Version None)
Quarter: 2011Q3

REPORT INFORMATION
  Report Type: 
  Country: None (occurrence: None)
  Receive Date: 20110728
  Receipt Date: 20110716
  Transmission Date: 20111222
  Serious: Yes (Hospitalization)
  Sender: FDA-Public Use
  Company Number: US-PFIZER INC-2011161161

PATIENT
  Sex: Female

DRUGS (3)
  1. PRISTIQ [Suspect]
     Indication: STRESS
  2. PRISTIQ [Suspect]
     Indication: DEPRESSION
     Dosage: UNK
     Dates: start: 20110601
  3. PREMPRO [Concomitant]
     Dosage: UNK

REACTIONS (3)
  - SOMNOLENCE [None]
  - ATRIAL FIBRILLATION [None]
  - FATIGUE [None]
